FAERS Safety Report 14532639 (Version 1)
Quarter: 2018Q1

REPORT INFORMATION
  Report Type: Spontaneous
  Country: US (occurrence: US)
  Receive Date: 20180213
  Receipt Date: 20180213
  Transmission Date: 20180509
  Serious: No
  Sender: FDA-Public Use
  Company Number: None

PATIENT
  Age: 84 Year
  Sex: Male
  Weight: 69.54 kg

DRUGS (1)
  1. PROCHLORPERAZINE. [Suspect]
     Active Substance: PROCHLORPERAZINE
     Indication: ANXIETY
     Dates: start: 20170825, end: 20170825

REACTIONS (2)
  - Drug ineffective [None]
  - Agitation [None]

NARRATIVE: CASE EVENT DATE: 20170825
